FAERS Safety Report 6984369-X (Version None)
Quarter: 2010Q3

REPORT INFORMATION
  Report Type: 
  Country: None (occurrence: None)
  Receive Date: 20100915
  Receipt Date: 20100910
  Transmission Date: 20110219
  Serious: Yes (Death)
  Sender: FDA-Public Use
  Company Number: PHHY2010BR60252

PATIENT
  Sex: Male
  Weight: 85 kg

DRUGS (12)
  1. STALEVO 100 [Suspect]
     Dosage: 1 DF, BID
     Route: 048
  2. SINEMET [Concomitant]
     Dosage: 1 DF, QD
     Route: 048
  3. SIMVASTATIN [Concomitant]
     Indication: BLOOD CHOLESTEROL INCREASED
     Dosage: 10 MG, QD
     Route: 048
  4. ADALAT [Concomitant]
     Indication: HYPERTENSION
     Dosage: 30 MG, QD
     Route: 048
  5. CALCIUM CARBONATE [Concomitant]
     Indication: OSTEOPENIA
     Dosage: 20 MG, BID
     Route: 048
  6. PULMICORT [Concomitant]
     Indication: BRONCHITIS
     Dosage: 20 DROPS
  7. ATROVENT [Concomitant]
     Indication: BRONCHITIS
     Dosage: 20 DROPS
  8. INSULIN [Concomitant]
     Indication: DIABETES MELLITUS
     Dosage: 6 UNITS DAILY
     Route: 058
  9. METFORMIN HCL [Concomitant]
     Indication: DIABETES MELLITUS
     Dosage: 850 MG
     Route: 048
  10. DEPAKENE [Concomitant]
     Indication: CONVULSION
     Dosage: 500 MG, BID
     Route: 048
  11. SECOTEX [Concomitant]
     Indication: PROSTATIC DISORDER
     Dosage: 0.4 MG, QD
     Route: 048
  12. NITROFURANTOIN [Concomitant]
     Indication: URINARY TRACT INFECTION
     Dosage: 100 MG, QD
     Route: 048

REACTIONS (1)
  - DEATH [None]
